FAERS Safety Report 8851777 (Version 1)
Quarter: 2012Q4

REPORT INFORMATION
  Report Type: 
  Country: US (occurrence: US)
  Receive Date: 20121022
  Receipt Date: 20121022
  Transmission Date: 20130627
  Serious: No
  Sender: FDA-Public Use
  Company Number: US-PFIZER INC-2012262434

PATIENT
  Sex: Female

DRUGS (2)
  1. LYRICA [Suspect]
     Dosage: 200 mg, UNK
     Route: 048
  2. LYRICA [Suspect]
     Dosage: 100 mg, UNK
     Route: 048

REACTIONS (1)
  - Nausea [Unknown]
